FAERS Safety Report 4654700-9 (Version None)
Quarter: 2005Q2

REPORT INFORMATION
  Report Type: 
  Country: None (occurrence: None)
  Receive Date: 20050505
  Receipt Date: 20050505
  Transmission Date: 20051028
  Serious: Yes (Disabling)
  Sender: FDA-Public Use
  Company Number: None

PATIENT
  Age: 18 Year
  Sex: Male
  Weight: 79.3795 kg

DRUGS (2)
  1. ACCUTANE [Suspect]
     Indication: PAIN
     Dosage: ORAL
     Route: 048
     Dates: start: 20040201, end: 20040630
  2. ALBUTEROL [Concomitant]

REACTIONS (7)
  - DIARRHOEA [None]
  - DRY EYE [None]
  - FATIGUE [None]
  - HEADACHE [None]
  - MENTAL IMPAIRMENT [None]
  - PHARYNGOLARYNGEAL PAIN [None]
  - SLEEP DISORDER [None]
